FAERS Safety Report 6667312-2 (Version None)
Quarter: 2010Q2

REPORT INFORMATION
  Report Type: 
  Country: None (occurrence: None)
  Receive Date: 20100405
  Receipt Date: 20100325
  Transmission Date: 20101027
  Serious: Yes (Hospitalization)
  Sender: FDA-Public Use
  Company Number: GB-PFIZER INC-2010009445

PATIENT
  Age: 71 Year
  Sex: Female

DRUGS (1)
  1. CELECOXIB [Suspect]
     Indication: RHEUMATOID ARTHRITIS
     Dosage: 200 MG, UNK
     Route: 048
     Dates: start: 20090217

REACTIONS (1)
  - OSTEOARTHRITIS [None]
